FAERS Safety Report 19141875 (Version 4)
Quarter: 2025Q1

REPORT INFORMATION
  Report Type: Report from Study
  Country: BR (occurrence: BR)
  Receive Date: 20210415
  Receipt Date: 20250307
  Transmission Date: 20250409
  Serious: Yes (Hospitalization, Other)
  Sender: TAKEDA
  Company Number: BR-TAKEDA-BR201928972

PATIENT
  Age: 6 Year
  Sex: Male
  Weight: 12 kg

DRUGS (5)
  1. HEMO-8R [Suspect]
     Active Substance: ANTIHEMOPHILIC FACTOR, HUMAN RECOMBINANT
     Indication: Factor VIII deficiency
  2. HEMO-8R [Suspect]
     Active Substance: ANTIHEMOPHILIC FACTOR, HUMAN RECOMBINANT
     Dosage: 750 INTERNATIONAL UNIT, 3/WEEK
     Dates: start: 20200118
  3. HEMO-8R [Suspect]
     Active Substance: ANTIHEMOPHILIC FACTOR, HUMAN RECOMBINANT
     Dosage: 750 INTERNATIONAL UNIT, 3/WEEK
  4. COAGULATION FACTOR VII HUMAN [Suspect]
     Active Substance: COAGULATION FACTOR VII HUMAN
     Indication: Factor VIII deficiency
     Dosage: 2 MILLIGRAM, 3/WEEK
  5. COAGULATION FACTOR VII HUMAN [Suspect]
     Active Substance: COAGULATION FACTOR VII HUMAN

REACTIONS (10)
  - Factor VII inhibition [Unknown]
  - Lip haemorrhage [Unknown]
  - Pneumonia [Recovered/Resolved]
  - Drug ineffective [Unknown]
  - Traumatic haematoma [Recovered/Resolved]
  - Haematoma [Unknown]
  - Fall [Unknown]
  - Rhinitis [Unknown]
  - Asthma [Unknown]
  - Weight increased [Unknown]

NARRATIVE: CASE EVENT DATE: 20241001
